FAERS Safety Report 13269781 (Version 1)
Quarter: 2017Q1

REPORT INFORMATION
  Report Type: Spontaneous
  Country: US (occurrence: US)
  Receive Date: 20170224
  Receipt Date: 20170224
  Transmission Date: 20170428
  Serious: No
  Sender: FDA-Public Use
  Company Number: US-BRACCO-013588

PATIENT
  Age: 68 Year
  Sex: Female

DRUGS (5)
  1. CLARITIN [Concomitant]
     Active Substance: LORATADINE
  2. METRONIDAZOLE. [Concomitant]
     Active Substance: METRONIDAZOLE
  3. DIFLUCAN [Concomitant]
     Active Substance: FLUCONAZOLE
  4. ISOVUE 370 [Suspect]
     Active Substance: IOPAMIDOL
     Indication: COMPUTERISED TOMOGRAM
     Dosage: ^AUTO INJECT^
     Route: 042
     Dates: start: 20160519, end: 20160519
  5. ULTRAN [Concomitant]
     Active Substance: PHENAGLYCODOL

REACTIONS (2)
  - Product container issue [Unknown]
  - Pharyngeal oedema [Unknown]

NARRATIVE: CASE EVENT DATE: 20160519
